FAERS Safety Report 6444463-9 (Version None)
Quarter: 2009Q4

REPORT INFORMATION
  Report Type: 
  Country: None (occurrence: None)
  Receive Date: 20091118
  Receipt Date: 20091105
  Transmission Date: 20100525
  Serious: No
  Sender: FDA-Public Use
  Company Number: US-B.I. PHARMACEUTICALS,INC./RIDGEFIELD-2009-BP-12936BP

PATIENT
  Sex: Male

DRUGS (4)
  1. APTIVUS/RITONAVIR CAPSULES [Suspect]
     Indication: HIV INFECTION
     Route: 048
     Dates: start: 20090901, end: 20091105
  2. TENX 335 [Concomitant]
     Indication: HIV INFECTION
     Route: 042
     Dates: start: 20090901
  3. TRUVADA [Concomitant]
     Indication: HIV INFECTION
     Route: 048
  4. ETRAVIRINE [Concomitant]
     Indication: HIV INFECTION
     Route: 048

REACTIONS (1)
  - LIVER FUNCTION TEST ABNORMAL [None]
